FAERS Safety Report 12755802 (Version 4)
Quarter: 2017Q3

REPORT INFORMATION
  Report Type: Spontaneous
  Country: JP (occurrence: JP)
  Receive Date: 20160916
  Receipt Date: 20170808
  Transmission Date: 20171127
  Serious: Yes (Death, Disabling, Other)
  Sender: FDA-Public Use
  Company Number: PHHY2016JP126744

PATIENT
  Age: 80 Year
  Sex: Male

DRUGS (5)
  1. DIDRONEL [Concomitant]
     Active Substance: ETIDRONATE DISODIUM
     Indication: PRODUCT USED FOR UNKNOWN INDICATION
     Dosage: 200 MG, QD (TWO WEEKS INGESTION AND THREE WEEKS REST)
     Route: 048
  2. ZOMETA [Suspect]
     Active Substance: ZOLEDRONIC ACID
     Indication: METASTASES TO BONE
     Dosage: 4 MG, QD
     Route: 041
     Dates: start: 20080403, end: 20111006
  3. AREDIA [Suspect]
     Active Substance: PAMIDRONATE DISODIUM
     Indication: METASTASES TO BONE
     Dosage: 30 MG, QD
     Route: 041
     Dates: start: 20050331, end: 20050707
  4. DECADRON [Concomitant]
     Active Substance: DEXAMETHASONE
     Indication: PRODUCT USED FOR UNKNOWN INDICATION
     Dosage: UNK
     Route: 048
  5. BISPHONAL [Suspect]
     Active Substance: INCADRONATE DISODIUM
     Indication: METASTASES TO BONE
     Dosage: 10 MG, QD
     Route: 041
     Dates: start: 20061214, end: 200803

REACTIONS (11)
  - Malignant neoplasm progression [Fatal]
  - Pain [Unknown]
  - Prostate cancer [Fatal]
  - Bone disorder [Recovering/Resolving]
  - Osteonecrosis of jaw [Recovering/Resolving]
  - Erythema [Unknown]
  - Purulence [Unknown]
  - Fistula [Unknown]
  - Swelling [Unknown]
  - Tenderness [Unknown]
  - Exposed bone in jaw [Unknown]

NARRATIVE: CASE EVENT DATE: 20091027
